FAERS Safety Report 17546745 (Version 1)
Quarter: 2020Q1

REPORT INFORMATION
  Report Type: Spontaneous
  Country: US (occurrence: US)
  Receive Date: 20200316
  Receipt Date: 20200316
  Transmission Date: 20200409
  Serious: No
  Sender: FDA-Public Use
  Company Number: US-SA-2020SA065752

PATIENT
  Age: 61 Year
  Sex: Female

DRUGS (1)
  1. APIDRA SOLOSTAR [Suspect]
     Active Substance: INSULIN GLULISINE
     Dosage: 18 IU, WITH MEALS AND THEN TAKE MORE APIDRA 2 HOURS AFTER EATING, IF NEEDED
     Route: 065

REACTIONS (2)
  - Asthma [Unknown]
  - Hyperglycaemia [Unknown]
